FAERS Safety Report 7680387-7 (Version None)
Quarter: 2011Q3

REPORT INFORMATION
  Report Type: 
  Country: None (occurrence: None)
  Receive Date: 20110812
  Receipt Date: 20110808
  Transmission Date: 20111222
  Serious: Yes (Death, Life-Threatening, Hospitalization, Disabling)
  Sender: FDA-Public Use
  Company Number: JP-ASTRAZENECA-2011SE44489

PATIENT
  Age: 30322 Day
  Sex: Male
  Weight: 41.9 kg

DRUGS (16)
  1. TAKEPURON OD [Concomitant]
     Dosage: DAILY
  2. SIGMART [Concomitant]
  3. CLOPIDOGREL [Suspect]
     Indication: CORONARY ARTERY DISEASE
     Route: 048
     Dates: start: 20110726, end: 20110726
  4. LACTEC [Concomitant]
  5. CELESTAMINE TAB [Concomitant]
  6. DEPAS [Concomitant]
     Dosage: DAILY
  7. ASPIRIN [Suspect]
     Indication: CORONARY ARTERY DISEASE
     Route: 048
  8. HEPARIN SODIUM [Suspect]
     Route: 065
     Dates: end: 20110727
  9. ARICEPT [Concomitant]
     Dosage: DAILY
  10. KERATINAMIN [Concomitant]
     Dosage: DAILY
  11. RINDERON VG [Concomitant]
     Dosage: DAILY
  12. ATARAX [Concomitant]
  13. PLACEBO [Suspect]
     Indication: CORONARY ARTERY DISEASE
     Dosage: DAILY ONCE
     Route: 048
     Dates: start: 20110726
  14. MUCOSTA [Concomitant]
  15. BERIZYM [Concomitant]
  16. MENEST [Concomitant]
     Dosage: DAILY

REACTIONS (1)
  - CEREBRAL HAEMORRHAGE [None]
